FAERS Safety Report 5272376-7 (Version None)
Quarter: 2007Q1

REPORT INFORMATION
  Report Type: 
  Country: None (occurrence: None)
  Receive Date: 20061214
  Receipt Date: 20060727
  Transmission Date: 20070707
  Serious: Yes (Hospitalization, Other)
  Sender: FDA-Public Use
  Company Number: 2006094164

PATIENT
  Age: 54 Year
  Sex: Male
  Weight: 97.0698 kg

DRUGS (2)
  1. BEXTRA [Suspect]
     Indication: ARTHRITIS
     Dosage: SEE IMAGE
     Dates: start: 20020814, end: 20030609
  2. CELEBREX [Concomitant]

REACTIONS (1)
  - MYOCARDIAL INFARCTION [None]
